FAERS Safety Report 7010933-8 (Version None)
Quarter: 2010Q3

REPORT INFORMATION
  Report Type: 
  Country: None (occurrence: None)
  Receive Date: 20100923
  Receipt Date: 20100923
  Transmission Date: 20110219
  Serious: Yes (Other)
  Sender: FDA-Public Use
  Company Number: None

PATIENT
  Age: 62 Year
  Sex: Female
  Weight: 71.6683 kg

DRUGS (1)
  1. RECLAST [Suspect]
     Indication: OSTEOPOROSIS
     Dosage: 12-31-09 ONCE A YEAR I.V.
     Route: 042
     Dates: start: 20091231

REACTIONS (8)
  - ASTHENIA [None]
  - BODY TEMPERATURE INCREASED [None]
  - FEELING COLD [None]
  - FEELING HOT [None]
  - INFLUENZA LIKE ILLNESS [None]
  - INJECTION SITE PAIN [None]
  - MUSCLE SPASMS [None]
  - NAUSEA [None]
